FAERS Safety Report 14309659 (Version 3)
Quarter: 2018Q1

REPORT INFORMATION
  Report Type: Report from Study
  Country: ES (occurrence: ES)
  Receive Date: 20171220
  Receipt Date: 20180305
  Transmission Date: 20180509
  Serious: Yes (Other)
  Sender: FDA-Public Use
  Company Number: ES-PFIZER INC-2017537342

PATIENT
  Age: 3 Year
  Sex: Male

DRUGS (6)
  1. VINCRISTINE SULFATE. [Suspect]
     Active Substance: VINCRISTINE SULFATE
     Indication: ACUTE LYMPHOCYTIC LEUKAEMIA
     Dosage: 1.06 MG, 1X/DAY
     Route: 042
     Dates: start: 20170808, end: 20170808
  2. ZOVIRAX [Concomitant]
     Active Substance: ACYCLOVIR
     Indication: OPPORTUNISTIC INFECTION PROPHYLAXIS
     Dosage: 6 ML, 1X/DAY
     Route: 048
     Dates: start: 20170201
  3. HYDROCORTISON /00028601/ [Concomitant]
     Active Substance: HYDROCORTISONE
     Dosage: 8 MG, 1X/DAY
     Route: 048
     Dates: start: 20170808
  4. DOXORUBICIN HCL [Suspect]
     Active Substance: DOXORUBICIN HYDROCHLORIDE
     Indication: ACUTE LYMPHOCYTIC LEUKAEMIA
     Dosage: 21.2 MG, 1X/DAY
     Route: 042
     Dates: start: 20170808, end: 20170808
  5. DEXAMETASON /00016001/ [Suspect]
     Active Substance: DEXAMETHASONE
     Indication: ACUTE LYMPHOCYTIC LEUKAEMIA
     Dosage: UNK
     Route: 042
     Dates: start: 20170718, end: 20170806
  6. SEPTRIN PAEDIATRIC [Concomitant]
     Indication: OPPORTUNISTIC INFECTION PROPHYLAXIS
     Dosage: 10 ML, 1X/DAY
     Route: 048
     Dates: start: 20170201

REACTIONS (2)
  - Anal inflammation [Recovered/Resolved]
  - Stomatitis [Recovered/Resolved]

NARRATIVE: CASE EVENT DATE: 20170816
